FAERS Safety Report 8503986 (Version 5)
Quarter: 2012Q4

REPORT INFORMATION
  Report Type: Report from Study
  Country: FR (occurrence: FR)
  Receive Date: 20120411
  Receipt Date: 20120921
  Transmission Date: 20130627
  Serious: Yes (Hospitalization)
  Sender: FDA-Public Use
  Company Number: FR-ROCHE-1057831

PATIENT
  Age: 60 Year
  Sex: Male
  Weight: 64 kg

DRUGS (11)
  1. ZELBORAF [Suspect]
     Indication: MALIGNANT MELANOMA
     Dosage: Last dose prior to SAE on 04/Apr/2012.
     Route: 048
     Dates: start: 20120207, end: 20120411
  2. ZELBORAF [Suspect]
     Dosage: Restarted at a reduced dose
     Route: 048
     Dates: start: 20120510
  3. NIFLURIL [Concomitant]
     Route: 048
     Dates: start: 20120217, end: 20120306
  4. RHINOFEBRAL [Concomitant]
     Dosage: As required.
     Route: 048
     Dates: start: 20120225, end: 20120306
  5. RHINOFEBRAL [Concomitant]
     Route: 048
     Dates: start: 20120306, end: 20120317
  6. PERUBORE [Concomitant]
     Dosage: Inhalational
     Route: 050
     Dates: start: 20120306, end: 20120317
  7. AUGMENTIN [Concomitant]
     Route: 048
     Dates: start: 20120306, end: 20120317
  8. DIPROSONE [Concomitant]
     Dosage: transcutaneous
     Route: 050
     Dates: start: 20120306
  9. BIAFINE [Concomitant]
     Dosage: Transcutaneous, as required.
     Route: 065
     Dates: start: 20120517, end: 20120520
  10. DOLIPRANE [Concomitant]
     Dosage: As required.
     Route: 048
     Dates: start: 201202, end: 20120306
  11. DOLIPRANE [Concomitant]
     Dosage: As required.
     Route: 065
     Dates: start: 20120405, end: 20120412

REACTIONS (1)
  - Hyperthyroidism [Recovered/Resolved]
